FAERS Safety Report 8102804-0 (Version None)
Quarter: 2012Q1

REPORT INFORMATION
  Report Type: 
  Country: None (occurrence: None)
  Receive Date: 20120127
  Receipt Date: 20120119
  Transmission Date: 20120608
  Serious: Yes (Life-Threatening, Hospitalization)
  Sender: FDA-Public Use
  Company Number: DSA_48614_2011

PATIENT
  Age: 52 Year
  Sex: Male

DRUGS (9)
  1. DILTIAZEM HYDROCHLORIDE [Suspect]
     Indication: PRODUCT USED FOR UNKNOWN INDICATION
     Dosage: 3900 MG 1X, NOT THE PRESCRIBED AMOUNT)
  2. NICORANDIL (NICORANDIL) [Suspect]
     Indication: MYOCARDIAL ISCHAEMIA
     Dosage: (120 MG 1X,
  3. ISOSORBIDE MONONITRATE [Suspect]
     Indication: MYOCARDIAL ISCHAEMIA
     Dosage: 800 MG 1X, NOT THE PRESCRIBED AMOUNTT
  4. SIMVASTATION [Concomitant]
  5. TAMSULOSIN HCL [Concomitant]
  6. ASPIRIN [Concomitant]
  7. CITALOPRAM HYDROBROMIDE [Concomitant]
  8. RAMIPRIL [Suspect]
     Dosage: (140 MG 1X,
  9. OMEPRAZOLE [Concomitant]

REACTIONS (6)
  - SOMNOLENCE [None]
  - MULTIPLE DRUG OVERDOSE [None]
  - HYPOTENSION [None]
  - ANURIA [None]
  - BLOOD CREATININE INCREASED [None]
  - TOXICITY TO VARIOUS AGENTS [None]
